FAERS Safety Report 4828295-0 (Version None)
Quarter: 2005Q4

REPORT INFORMATION
  Report Type: 
  Country: None (occurrence: None)
  Receive Date: 20051114
  Receipt Date: 20051114
  Transmission Date: 20060501
  Serious: Yes (Hospitalization)
  Sender: FDA-Public Use
  Company Number: None

PATIENT
  Sex: Male
  Weight: 64 kg

DRUGS (2)
  1. DURAGESIC-100 [Suspect]
     Indication: PAIN
     Dosage: 25 MCG 72 HRS DERM
     Route: 062
     Dates: start: 20050907, end: 20051020
  2. IRESSA [Suspect]
     Indication: NEOPLASM MALIGNANT
     Dosage: 250 MG QD PO
     Route: 048
     Dates: start: 20050725, end: 20050822

REACTIONS (3)
  - FEBRILE NEUTROPENIA [None]
  - IDIOPATHIC THROMBOCYTOPENIC PURPURA [None]
  - RASH PUSTULAR [None]
